FAERS Safety Report 9321209 (Version 2)
Quarter: 2013Q3

REPORT INFORMATION
  Report Type: Report from Study
  Country: CA (occurrence: CA)
  Receive Date: 20130531
  Receipt Date: 20130927
  Transmission Date: 20140515
  Serious: Yes (Hospitalization, Other)
  Sender: FDA-Public Use
  Company Number: CA-JNJFOC-20130521397

PATIENT
  Age: 28 Year
  Sex: Female
  Weight: 63.3 kg

DRUGS (8)
  1. REMICADE [Suspect]
     Indication: CROHN^S DISEASE
     Route: 042
     Dates: start: 20130802
  2. REMICADE [Suspect]
     Indication: CROHN^S DISEASE
     Route: 042
     Dates: start: 20130327
  3. REMICADE [Suspect]
     Indication: CROHN^S DISEASE
     Route: 042
     Dates: start: 20090826
  4. CELEXA [Concomitant]
     Route: 065
  5. SEROQUEL [Concomitant]
     Route: 065
  6. ATIVAN [Concomitant]
     Route: 065
  7. CLONAZEPAM [Concomitant]
     Route: 065
  8. MIRTAZAPINE [Concomitant]
     Route: 065

REACTIONS (9)
  - Mental disorder [Unknown]
  - Surgery [Unknown]
  - Hernia [Unknown]
  - Tooth abscess [Unknown]
  - Pruritus [Recovered/Resolved]
  - Abdominal pain upper [Unknown]
  - Malaise [Unknown]
  - Muscle spasms [Recovered/Resolved]
  - Infusion related reaction [Recovered/Resolved]
